FAERS Safety Report 6840389-7 (Version None)
Quarter: 2010Q3

REPORT INFORMATION
  Report Type: 
  Country: None (occurrence: None)
  Receive Date: 20100714
  Receipt Date: 20100709
  Transmission Date: 20110219
  Serious: Yes (Hospitalization)
  Sender: FDA-Public Use
  Company Number: FR-BRISTOL-MYERS SQUIBB COMPANY-15186703

PATIENT
  Age: 38 Year
  Sex: Female

DRUGS (7)
  1. SKENAN LP CAPS [Suspect]
     Indication: MUSCLE SPASMS
     Route: 048
  2. ABILIFY [Suspect]
     Dates: start: 20100401
  3. CYMBALTA [Concomitant]
  4. RISPERDAL [Concomitant]
  5. LEVOTHYROXINE SODIUM [Concomitant]
  6. TRANXENE [Concomitant]
     Dosage: ALSO TAKEN AS ORAL
     Route: 042
  7. TRANXENE [Concomitant]
     Route: 048

REACTIONS (2)
  - SINUSITIS [None]
  - WITHDRAWAL SYNDROME [None]
